FAERS Safety Report 15630074 (Version 1)
Quarter: 2018Q4

REPORT INFORMATION
  Report Type: Report from Study
  Country: CN (occurrence: CN)
  Receive Date: 20181118
  Receipt Date: 20181118
  Transmission Date: 20190205
  Serious: Yes (Other)
  Sender: FDA-Public Use
  Company Number: CN-ROCHE-2212216

PATIENT

DRUGS (3)
  1. BEVACIZUMAB. [Suspect]
     Active Substance: BEVACIZUMAB
     Indication: NON-SMALL CELL LUNG CANCER
     Dosage: 15MG/KG OR 7.5 MG/KG, ON DAY 1
     Route: 065
  2. PACLITAXEL. [Suspect]
     Active Substance: PACLITAXEL
     Indication: NON-SMALL CELL LUNG CANCER
     Dosage: DAY 1
     Route: 065
  3. CARBOPLATIN. [Suspect]
     Active Substance: CARBOPLATIN
     Indication: NON-SMALL CELL LUNG CANCER
     Dosage: AUC=5 OR 6, D1
     Route: 065

REACTIONS (30)
  - Arrhythmia [Unknown]
  - Deep vein thrombosis [Unknown]
  - Thrombocytopenia [Unknown]
  - Nausea [Unknown]
  - Blood bilirubin increased [Unknown]
  - Decreased appetite [Unknown]
  - Phlebitis [Unknown]
  - Leukopenia [Unknown]
  - Fatigue [Unknown]
  - Hypertension [Unknown]
  - Cerebral infarction [Recovering/Resolving]
  - Pharyngeal haemorrhage [Unknown]
  - Gingival bleeding [Unknown]
  - Headache [Unknown]
  - Dizziness [Unknown]
  - Diarrhoea [Unknown]
  - Haematuria [Unknown]
  - Pneumonia [Unknown]
  - Myocardial ischaemia [Unknown]
  - Haemoptysis [Unknown]
  - Proteinuria [Unknown]
  - Alopecia [Unknown]
  - Epistaxis [Unknown]
  - Pain in extremity [Unknown]
  - Vomiting [Unknown]
  - Pain [Unknown]
  - Anaemia [Unknown]
  - Hepatic function abnormal [Unknown]
  - Haemorrhoidal haemorrhage [Unknown]
  - Conjunctival haemorrhage [Unknown]
